APPROVED DRUG PRODUCT: PEPCID AC
Active Ingredient: FAMOTIDINE
Strength: 20MG
Dosage Form/Route: TABLET, CHEWABLE;ORAL
Application: N020801 | Product #002
Applicant: KENVUE BRANDS LLC
Approved: Dec 17, 2007 | RLD: Yes | RS: Yes | Type: OTC